FAERS Safety Report 12266235 (Version 1)
Quarter: 2016Q2

REPORT INFORMATION
  Report Type: Spontaneous
  Country: US (occurrence: None)
  Receive Date: 20160413
  Receipt Date: 20160413
  Transmission Date: 20160815
  Serious: Yes (Hospitalization)
  Sender: FDA-Public Use
  Company Number: None

PATIENT
  Age: 49 Year
  Sex: Female
  Weight: 65.77 kg

DRUGS (6)
  1. ASPRIN [Concomitant]
     Active Substance: ASPIRIN
  2. EXCEDRIN [Concomitant]
     Active Substance: ACETAMINOPHEN\ASPIRIN\CAFFEINE
  3. HYDROXYCHLOROQUINE [Concomitant]
     Active Substance: HYDROXYCHLOROQUINE
  4. IBUPROFEN. [Concomitant]
     Active Substance: IBUPROFEN
  5. TERBINAFINE, 250 MG [Suspect]
     Active Substance: TERBINAFINE
     Indication: TINEA PEDIS
     Dosage: 90 TABLETS ONCE A DAY
     Route: 048
  6. MYCOPHENOLATE [Concomitant]
     Active Substance: MYCOPHENOLIC ACID

REACTIONS (10)
  - Urticaria [None]
  - Impaired work ability [None]
  - Thrombosis [None]
  - Rash [None]
  - Blister [None]
  - Peripheral swelling [None]
  - Wound [None]
  - No therapeutic response [None]
  - Skin exfoliation [None]
  - Alopecia [None]

NARRATIVE: CASE EVENT DATE: 20140801
